FAERS Safety Report 24211452 (Version 1)
Quarter: 2024Q3

REPORT INFORMATION
  Report Type: Report from Study
  Country: CN (occurrence: CN)
  Receive Date: 20240814
  Receipt Date: 20240814
  Transmission Date: 20241016
  Serious: Yes (Death, Hospitalization, Other)
  Sender: SANOFI AVENTIS
  Company Number: CN-SA-2024SA239979

PATIENT
  Age: 67 Year
  Sex: Male

DRUGS (4)
  1. OXALIPLATIN [Suspect]
     Active Substance: OXALIPLATIN
     Indication: Adenocarcinoma gastric
     Dosage: 224.9 MG
     Route: 042
     Dates: start: 20190404
  2. OXALIPLATIN [Suspect]
     Active Substance: OXALIPLATIN
     Dosage: 158  MG
     Route: 042
     Dates: start: 20190813
  3. CAPECITABINE [Suspect]
     Active Substance: CAPECITABINE
     Indication: Adenocarcinoma gastric
     Dosage: 1650  MG, BID
     Route: 048
     Dates: start: 20190404
  4. NIVOLUMAB [Suspect]
     Active Substance: NIVOLUMAB
     Indication: Adenocarcinoma gastric
     Dosage: 360  MG
     Route: 042
     Dates: start: 20190404

REACTIONS (1)
  - Disseminated intravascular coagulation [Fatal]

NARRATIVE: CASE EVENT DATE: 20191012
